FAERS Safety Report 6109284-5 (Version None)
Quarter: 2009Q1

REPORT INFORMATION
  Report Type: 
  Country: None (occurrence: None)
  Receive Date: 20090309
  Receipt Date: 20090309
  Transmission Date: 20090719
  Serious: Yes (Hospitalization)
  Sender: FDA-Public Use
  Company Number: None

PATIENT
  Sex: Female
  Weight: 53.6 kg

DRUGS (15)
  1. CYTARABINE [Suspect]
     Dosage: 65080 MG
  2. DAUNORUBICIN HCL [Suspect]
     Dosage: 429 MG
  3. ETOPOSIDE [Suspect]
     Dosage: 2500 MG
  4. MYLOTARG [Suspect]
     Dosage: 8.7 MG
  5. ELSPAR [Suspect]
     Dosage: 17400 MG
  6. MITOXANTRONE HYDROCHLORIDE [Suspect]
     Dosage: 67.6 MG
  7. ATARAX [Concomitant]
  8. BACTRIM [Concomitant]
  9. MAGNESIUM SULFATE [Concomitant]
  10. PERIDEX [Concomitant]
  11. PREVACID [Concomitant]
  12. PROVERA [Concomitant]
  13. TYLENOL [Concomitant]
  14. VORICONAZOLE [Concomitant]
  15. ZOFRAN [Concomitant]

REACTIONS (7)
  - CHEST PAIN [None]
  - DYSPNOEA [None]
  - HYPOAESTHESIA [None]
  - NEUTROPHIL COUNT DECREASED [None]
  - PAIN [None]
  - RENAL FAILURE [None]
  - SHOCK [None]
